FAERS Safety Report 5872397-7 (Version None)
Quarter: 2008Q3

REPORT INFORMATION
  Report Type: 
  Country: None (occurrence: None)
  Receive Date: 20080905
  Receipt Date: 20080902
  Transmission Date: 20090109
  Serious: Yes (Other)
  Sender: FDA-Public Use
  Company Number: DE-BRISTOL-MYERS SQUIBB COMPANY-14322317

PATIENT
  Age: 10 Day
  Sex: Male

DRUGS (1)
  1. ABILIFY [Suspect]
     Route: 064

REACTIONS (4)
  - HYPOGLYCAEMIA [None]
  - PREGNANCY [None]
  - TACHYCARDIA [None]
  - TACHYPNOEA [None]
